FAERS Safety Report 13399871 (Version 1)
Quarter: 2017Q2

REPORT INFORMATION
  Report Type: Spontaneous
  Country: US (occurrence: US)
  Receive Date: 20170404
  Receipt Date: 20170404
  Transmission Date: 20170830
  Serious: Yes (Hospitalization, Disabling)
  Sender: FDA-Public Use
  Company Number: None

PATIENT
  Age: 26 Year
  Sex: Female

DRUGS (7)
  1. NUVARING [Concomitant]
     Active Substance: ETHINYL ESTRADIOL\ETONOGESTREL
  2. MAGNESIUM [Concomitant]
     Active Substance: MAGNESIUM
  3. PANTOPRAZOLE [Concomitant]
     Active Substance: PANTOPRAZOLE
  4. MULTI-VITAMIN [Concomitant]
     Active Substance: .ALPHA.-TOCOPHEROL ACETATE, DL-\ASCORBIC ACID\CYANOCOBALAMIN\FLUORIDE ION\FOLIC ACID\NIACIN\PYRIDOXINE\RIBOFLAVIN\THIAMINE\VITAMIN A\VITAMIN D
  5. IC TOPIRAMTE 25MG TABLET [Suspect]
     Active Substance: TOPIRAMATE
     Indication: MIGRAINE
     Dosage: QUANTITY:1 TABLET(S);OTHER FREQUENCY:AS DIRECTED;?
     Route: 048
     Dates: start: 20170316, end: 20170326
  6. CITALOPRAM [Concomitant]
     Active Substance: CITALOPRAM HYDROBROMIDE
  7. VITAMIN D-COMPLEX [Concomitant]

REACTIONS (8)
  - Headache [None]
  - Visual acuity reduced [None]
  - Angle closure glaucoma [None]
  - Eye pain [None]
  - Hypotension [None]
  - Vision blurred [None]
  - Hypokalaemia [None]
  - Gastrointestinal viral infection [None]

NARRATIVE: CASE EVENT DATE: 20170326
